FAERS Safety Report 9608870 (Version 1)
Quarter: 2013Q4

REPORT INFORMATION
  Report Type: Report from Study
  Country: MX (occurrence: MX)
  Receive Date: 20131009
  Receipt Date: 20131009
  Transmission Date: 20140711
  Serious: Yes (Other)
  Sender: FDA-Public Use
  Company Number: MX-UCBSA-099759

PATIENT
  Age: 29 Year
  Sex: Female
  Weight: 60.5 kg

DRUGS (4)
  1. CERTOLIZUMAB PEGOL [Suspect]
     Indication: SPONDYLITIS
     Route: 058
     Dates: start: 20110411, end: 20120924
  2. AZULFIDINE [Concomitant]
     Indication: SPONDYLITIS
     Route: 048
     Dates: start: 20110225
  3. CELECOXIB [Concomitant]
     Indication: SPONDYLITIS
     Route: 048
     Dates: start: 20110318
  4. OMEPRAZOL [Concomitant]
     Indication: GASTRITIS
     Route: 048
     Dates: start: 20110120

REACTIONS (1)
  - Upper respiratory tract infection [Recovered/Resolved]
